FAERS Safety Report 11096603 (Version 1)
Quarter: 2015Q2

REPORT INFORMATION
  Report Type: Spontaneous
  Country: US (occurrence: US)
  Receive Date: 20150507
  Receipt Date: 20150507
  Transmission Date: 20150821
  Serious: Yes (Hospitalization)
  Sender: FDA-Public Use
  Company Number: US-ABBVIE-15P-163-1374045-00

PATIENT
  Sex: Female

DRUGS (1)
  1. VIEKIRA PAK [Suspect]
     Active Substance: DASABUVIR\OMBITASVIR\PARITAPREVIR\RITONAVIR
     Indication: HEPATITIS C
     Dosage: COMPLETED FULL 12 WEEKS
     Route: 048
     Dates: end: 20150314

REACTIONS (5)
  - Face oedema [Not Recovered/Not Resolved]
  - Candida infection [Not Recovered/Not Resolved]
  - Rash [Not Recovered/Not Resolved]
  - Interstitial lung disease [Not Recovered/Not Resolved]
  - Lung infiltration [Not Recovered/Not Resolved]

NARRATIVE: CASE EVENT DATE: 201504
